FAERS Safety Report 7308947-3 (Version None)
Quarter: 2011Q1

REPORT INFORMATION
  Report Type: 
  Country: None (occurrence: None)
  Receive Date: 20110223
  Receipt Date: 20110212
  Transmission Date: 20110831
  Serious: Yes (Other)
  Sender: FDA-Public Use
  Company Number: US-PERRIGO-11US001324

PATIENT
  Sex: Male
  Weight: 90.703 kg

DRUGS (2)
  1. MUSCLE XS CRM  563 [Suspect]
     Indication: MYALGIA
     Dosage: DAB, TWICE
     Route: 061
     Dates: start: 20101216, end: 20101216
  2. VICODIN [Concomitant]
     Indication: BACK PAIN
     Dosage: UNK
     Route: 048

REACTIONS (8)
  - FALL [None]
  - CONTUSION [None]
  - DELIRIUM [None]
  - BACK PAIN [None]
  - RENAL FAILURE [None]
  - URINARY INCONTINENCE [None]
  - RENAL PAIN [None]
  - VOMITING [None]
